FAERS Safety Report 6105836-7 (Version None)
Quarter: 2009Q1

REPORT INFORMATION
  Report Type: 
  Country: None (occurrence: None)
  Receive Date: 20090306
  Receipt Date: 20090217
  Transmission Date: 20090719
  Serious: Yes (Hospitalization)
  Sender: FDA-Public Use
  Company Number: GB-PFIZER INC-2009172747

PATIENT

DRUGS (13)
  1. CP-751,871 [Suspect]
     Indication: PROSTATE CANCER
     Dosage: 10 MG/KG, EVERY 3 WEEKS
     Route: 042
     Dates: start: 20080923, end: 20090127
  2. DOCETAXEL [Suspect]
     Indication: PROSTATE CANCER
     Dosage: 75 MG/KG, EVERY 3 WEEKS
     Route: 042
     Dates: start: 20080722, end: 20090127
  3. PREDNISOLONE AND PREDNISOLONE STEAGLATE [Suspect]
     Dosage: 5 MG, 1X/DAY
  4. TINZAPARIN SODIUM [Suspect]
     Dosage: 16000 IU, UNK
     Route: 058
  5. VERAPAMIL HYDROCHLORIDE [Concomitant]
     Dosage: 80 MG, 2X/DAY
  6. VALSARTAN [Concomitant]
     Dosage: 25 MG, 1X/DAY
  7. ZOLADEX [Concomitant]
     Dosage: 18.5 MG, EVERY 3 WEEKS
     Route: 058
  8. VENLAFAXINE HCL [Concomitant]
     Dosage: 37.5 MG, 1X/DAY
  9. NULYTELY [Concomitant]
     Dosage: UNK
  10. ANTAZOLINE [Concomitant]
     Dosage: UNK %, UNK
     Route: 061
  11. PARACETAMOL [Concomitant]
     Dosage: UNK
  12. OXYCONTIN [Concomitant]
     Dosage: 10 MG, 2X/DAY
  13. DIPROBASE CREAM [Concomitant]
     Route: 003

REACTIONS (2)
  - EPISTAXIS [None]
  - UPPER GASTROINTESTINAL HAEMORRHAGE [None]
